FAERS Safety Report 24902117 (Version 2)
Quarter: 2025Q3

REPORT INFORMATION
  Report Type: Spontaneous
  Country: US (occurrence: US)
  Receive Date: 20250129
  Receipt Date: 20250701
  Transmission Date: 20251020
  Serious: No
  Sender: SANOFI AVENTIS
  Company Number: US-SA-2025SA027831

PATIENT
  Age: 35 Year
  Sex: Male
  Weight: 68.18 kg

DRUGS (4)
  1. DUPIXENT [Suspect]
     Active Substance: DUPILUMAB
     Indication: Dermatitis atopic
     Dosage: 300 MG, QOW
     Route: 058
     Dates: start: 20241210
  2. MUCINEX [Concomitant]
     Active Substance: GUAIFENESIN
  3. DELSYM [Concomitant]
     Active Substance: DEXTROMETHORPHAN
     Dosage: UNK UNK, Q12H
  4. TACROLIMUS [Concomitant]
     Active Substance: TACROLIMUS

REACTIONS (4)
  - Erythema [Unknown]
  - Pruritus [Unknown]
  - Oropharyngeal pain [Unknown]
  - Dry eye [Unknown]

NARRATIVE: CASE EVENT DATE: 20241211
